FAERS Safety Report 5679763-3 (Version None)
Quarter: 2008Q1

REPORT INFORMATION
  Report Type: 
  Country: None (occurrence: None)
  Receive Date: 20080325
  Receipt Date: 20080320
  Transmission Date: 20080703
  Serious: Yes (Death)
  Sender: FDA-Public Use
  Company Number: US-GILEAD-2008-0015540

PATIENT
  Sex: Female
  Weight: 59.928 kg

DRUGS (10)
  1. LETAIRIS [Suspect]
     Indication: PULMONARY HYPERTENSION
     Route: 048
     Dates: start: 20080129
  2. COZAAR [Concomitant]
     Route: 048
  3. LASIX [Concomitant]
     Route: 048
  4. COUMADIN [Concomitant]
     Route: 048
  5. PROCARDIA XL [Concomitant]
     Route: 048
  6. GLUCOPHAGE [Concomitant]
     Route: 048
  7. PRILOSEC [Concomitant]
     Route: 048
  8. ASCORBIC ACID [Concomitant]
     Route: 048
  9. CALCIUM +D [Concomitant]
     Route: 048
  10. TRANXENE T-TAB [Concomitant]
     Route: 048

REACTIONS (6)
  - ABDOMINAL PAIN UPPER [None]
  - DEATH [None]
  - DYSPNOEA [None]
  - HEADACHE [None]
  - NASAL CONGESTION [None]
  - OEDEMA PERIPHERAL [None]
